FAERS Safety Report 22789713 (Version 6)
Quarter: 2024Q2

REPORT INFORMATION
  Report Type: Spontaneous
  Country: US (occurrence: US)
  Receive Date: 20230804
  Receipt Date: 20240624
  Transmission Date: 20240716
  Serious: Yes (Other)
  Sender: FDA-Public Use
  Company Number: US-PFIZER INC-202101057623

PATIENT
  Age: 84 Year
  Sex: Male

DRUGS (2)
  1. VYNDAMAX [Suspect]
     Active Substance: TAFAMIDIS
     Indication: Acquired ATTR amyloidosis
     Dosage: 61 MG
  2. VYNDAMAX [Suspect]
     Active Substance: TAFAMIDIS
     Indication: Familial amyloidosis

REACTIONS (6)
  - Rectal haemorrhage [Unknown]
  - Cardiac pacemaker insertion [Unknown]
  - Gait inability [Unknown]
  - Gait disturbance [Unknown]
  - Illness [Unknown]
  - Visual impairment [Unknown]
